FAERS Safety Report 7505506-4 (Version None)
Quarter: 2011Q2

REPORT INFORMATION
  Report Type: 
  Country: None (occurrence: None)
  Receive Date: 20110526
  Receipt Date: 20110523
  Transmission Date: 20111010
  Serious: Yes (Hospitalization)
  Sender: FDA-Public Use
  Company Number: US-BRISTOL-MYERS SQUIBB COMPANY-15770043

PATIENT
  Age: 2 Decade
  Sex: Male

DRUGS (3)
  1. ABILIFY [Suspect]
     Indication: ANXIETY
     Dosage: STARTED WITH 15MG(2WEEKS),INCREASED TO 30MG(3DAYS)
     Dates: start: 20110301
  2. PROZAC [Suspect]
     Indication: SLEEP DISORDER
     Dates: start: 20110301
  3. ABILIFY [Suspect]
     Indication: DEPRESSION
     Dosage: STARTED WITH 15MG(2WEEKS),INCREASED TO 30MG(3DAYS)
     Dates: start: 20110301

REACTIONS (5)
  - COMA [None]
  - LOSS OF CONSCIOUSNESS [None]
  - INSOMNIA [None]
  - MEMORY IMPAIRMENT [None]
  - VISION BLURRED [None]
